FAERS Safety Report 5324155-X (Version None)
Quarter: 2007Q2

REPORT INFORMATION
  Report Type: 
  Country: None (occurrence: None)
  Receive Date: 20070507
  Receipt Date: 20070426
  Transmission Date: 20071010
  Serious: Yes (Hospitalization)
  Sender: FDA-Public Use
  Company Number: E2090-00234-SPO-DE

PATIENT
  Age: 45 Year
  Sex: Male
  Weight: 80 kg

DRUGS (3)
  1. ZONEGRAN [Suspect]
     Indication: EPILEPSY
     Dosage: UP TITRATION TO 300 MG DAILY, ORAL
     Route: 048
     Dates: start: 20060718, end: 20061001
  2. TOPAMAX [Concomitant]
  3. TEGRETOL [Concomitant]

REACTIONS (2)
  - AGGRESSION [None]
  - IMPULSIVE BEHAVIOUR [None]
